FAERS Safety Report 10097603 (Version 1)
Quarter: 2014Q2

REPORT INFORMATION
  Report Type: Spontaneous
  Country: US (occurrence: US)
  Receive Date: 20140423
  Receipt Date: 20140423
  Transmission Date: 20141212
  Serious: No
  Sender: FDA-Public Use
  Company Number: US-BIOGENIDEC-2014BI033313

PATIENT
  Sex: Female

DRUGS (1)
  1. TECFIDERA [Suspect]
     Indication: PRODUCT USED FOR UNKNOWN INDICATION
     Dates: start: 20110105

REACTIONS (5)
  - Arthralgia [Unknown]
  - Muscular weakness [Unknown]
  - Facial pain [Unknown]
  - Odynophagia [Unknown]
  - Pain in jaw [Unknown]
